FAERS Safety Report 25850969 (Version 3)
Quarter: 2025Q4

REPORT INFORMATION
  Report Type: Report from Study
  Country: US (occurrence: US)
  Receive Date: 20250926
  Receipt Date: 20251027
  Transmission Date: 20260118
  Serious: No
  Sender: ACADIA PHARMACEUTICALS
  Company Number: US-ACADIA PHARMACEUTICALS INC.-ACA-2025-PIM-010654

PATIENT
  Age: 93 Year
  Sex: Female

DRUGS (6)
  1. NUPLAZID [Suspect]
     Active Substance: PIMAVANSERIN TARTRATE
     Indication: Parkinson^s disease psychosis
     Dosage: 34 MILLIGRAM, ONCE DAILY
     Route: 048
     Dates: start: 20250926, end: 20250926
  2. PREGABALIN [Concomitant]
     Active Substance: PREGABALIN
  3. LEVOTHYROXINE [Concomitant]
     Active Substance: LEVOTHYROXINE
  4. OMEPRAZOLE [Concomitant]
     Active Substance: OMEPRAZOLE
  5. DILTIAZEM [Concomitant]
     Active Substance: DILTIAZEM
  6. GLIMEPIRIDE [Concomitant]
     Active Substance: GLIMEPIRIDE

REACTIONS (1)
  - Back pain [Recovered/Resolved]

NARRATIVE: CASE EVENT DATE: 20250926
